FAERS Safety Report 6749506-0 (Version None)
Quarter: 2010Q2

REPORT INFORMATION
  Report Type: 
  Country: None (occurrence: None)
  Receive Date: 20100601
  Receipt Date: 20100528
  Transmission Date: 20101027
  Serious: Yes (Hospitalization)
  Sender: FDA-Public Use
  Company Number: FR-ROCHE-705907

PATIENT
  Sex: Male

DRUGS (9)
  1. ROCEPHIN [Suspect]
     Indication: DRUG USE FOR UNKNOWN INDICATION
     Route: 042
     Dates: start: 20100502
  2. PREVISCAN [Interacting]
     Indication: DRUG USE FOR UNKNOWN INDICATION
     Route: 048
     Dates: start: 20040101, end: 20100505
  3. DIGOXIN [Concomitant]
     Dosage: START DATE: BEFORE APRIL 2004
     Dates: end: 20100505
  4. RAMIPRIL [Concomitant]
     Dosage: START DATE: BEFORE APRIL 2004
     Dates: end: 20100505
  5. ALDACTONE [Concomitant]
     Dosage: START DATE: BEFORE APRIL 2004
     Dates: end: 20100505
  6. ALFUZOSINE [Concomitant]
     Dosage: START DATE: BEFORE APRIL 2004
     Dates: end: 20100505
  7. ZYLORIC [Concomitant]
     Dosage: START DATE: BEFORE APRIL 2004
     Dates: end: 20100505
  8. CARDENSIEL [Concomitant]
     Dates: end: 20100505
  9. OFLOXACIN [Concomitant]
     Dates: start: 20100504

REACTIONS (3)
  - CIRCULATORY COLLAPSE [None]
  - GASTROINTESTINAL HAEMORRHAGE [None]
  - INTERNATIONAL NORMALISED RATIO INCREASED [None]
